FAERS Safety Report 24371427 (Version 1)
Quarter: 2024Q3

REPORT INFORMATION
  Report Type: Report from Study
  Country: TR (occurrence: TR)
  Receive Date: 20240927
  Receipt Date: 20240927
  Transmission Date: 20241016
  Serious: Yes (Other)
  Sender: BAYER
  Company Number: TR-BAYER-2024A138241

PATIENT
  Age: 65 Year
  Sex: Female

DRUGS (4)
  1. MOXIFLOXACIN [Suspect]
     Active Substance: MOXIFLOXACIN
     Indication: Pulmonary tuberculosis
     Route: 048
  2. CYCLOSERINE [Concomitant]
     Active Substance: CYCLOSERINE
  3. LINEZOLID [Concomitant]
     Active Substance: LINEZOLID
  4. PROTIONAMIDE [Concomitant]
     Active Substance: PROTIONAMIDE

REACTIONS (2)
  - Off label use [None]
  - Drug reaction with eosinophilia and systemic symptoms [None]
